FAERS Safety Report 9773316 (Version 1)
Quarter: 2013Q4

REPORT INFORMATION
  Report Type: Report from Study
  Country: US (occurrence: US)
  Receive Date: 20131219
  Receipt Date: 20131219
  Transmission Date: 20140711
  Serious: Yes (Other)
  Sender: FDA-Public Use
  Company Number: US-NAPPMUNDI-USA-2013-0109677

PATIENT
  Sex: Male

DRUGS (2)
  1. OXY CR TAB [Suspect]
     Indication: ARTHRITIS
     Dosage: 120 MG, BID
     Route: 048
     Dates: start: 20130628
  2. OXY CR TAB [Suspect]
     Indication: BACK PAIN

REACTIONS (4)
  - Surgery [Unknown]
  - Knee arthroplasty [Unknown]
  - Arthritis [Unknown]
  - Fall [Unknown]
